FAERS Safety Report 19502724 (Version 3)
Quarter: 2021Q3

REPORT INFORMATION
  Report Type: Spontaneous
  Country: BR (occurrence: BR)
  Receive Date: 20210707
  Receipt Date: 20210813
  Transmission Date: 20211014
  Serious: Yes (Other)
  Sender: FDA-Public Use
  Company Number: NVSC2021BR150360

PATIENT
  Sex: Female
  Weight: 56 kg

DRUGS (6)
  1. ESTRADOT [Suspect]
     Active Substance: ESTRADIOL
     Dosage: 25 MCG (USED 2 OF THE 25 MG ONE TO GET THE 50 MG DOSE)
     Route: 062
  2. PENICILLIN [Suspect]
     Active Substance: PENICILLIN
     Indication: PRODUCT USED FOR UNKNOWN INDICATION
     Dosage: UNK
     Route: 065
  3. ESTRADOT [Suspect]
     Active Substance: ESTRADIOL
     Indication: SURGERY
     Dosage: 100 MCG (CUT IN HALF TO USE)
     Route: 062
  4. ESTRADOT [Suspect]
     Active Substance: ESTRADIOL
     Indication: MENOPAUSE
     Dosage: 50 MCG, SINCE 29 YEAR OLD
     Route: 062
  5. ESTRADOT [Suspect]
     Active Substance: ESTRADIOL
     Dosage: 100 MCG, BID, ONE PATCH, CUT IN HALF (PLACES ON THE BELLY/LEG)
     Route: 065
  6. ESTRADOT [Suspect]
     Active Substance: ESTRADIOL
     Dosage: 50 MCG, BIW, ONE PATCH (PLACES ON THE BELLY/ LEG) (SINCE 29 YEARS OLD)
     Route: 065

REACTIONS (13)
  - Drug hypersensitivity [Recovered/Resolved]
  - Deafness bilateral [Not Recovered/Not Resolved]
  - Syncope [Recovered/Resolved]
  - Ear pain [Not Recovered/Not Resolved]
  - Product use issue [Unknown]
  - Labyrinthitis [Not Recovered/Not Resolved]
  - Product availability issue [Unknown]
  - Noninfective sialoadenitis [Recovered/Resolved with Sequelae]
  - Spinal disorder [Not Recovered/Not Resolved]
  - Hypertension [Not Recovered/Not Resolved]
  - Wrong technique in product usage process [Unknown]
  - Dizziness [Not Recovered/Not Resolved]
  - Gastritis [Not Recovered/Not Resolved]
